FAERS Safety Report 20916388 (Version 2)
Quarter: 2022Q2

REPORT INFORMATION
  Report Type: Spontaneous
  Country: AU (occurrence: AU)
  Receive Date: 20220604
  Receipt Date: 20220609
  Transmission Date: 20220721
  Serious: Yes (Other)
  Sender: FDA-Public Use
  Company Number: AU-JNJFOC-20220546501

PATIENT
  Sex: Female

DRUGS (3)
  1. BENDAMUSTINE HYDROCHLORIDE [Suspect]
     Active Substance: BENDAMUSTINE HYDROCHLORIDE
     Indication: Splenic marginal zone lymphoma
     Dosage: (EVERY 4 CYCLICAL) (R HHAC REGIMEN), CONCENTRATE FOR SOLUTION FOR INFUSION
     Route: 042
     Dates: start: 2021
  2. CYTARABINE [Suspect]
     Active Substance: CYTARABINE
     Indication: Splenic marginal zone lymphoma
     Dosage: (EVERY 4 CYCLICAL) (R HHAC REGIMEN)
     Route: 065
     Dates: start: 2021
  3. RITUXIMAB [Suspect]
     Active Substance: RITUXIMAB
     Indication: Splenic marginal zone lymphoma
     Dosage: (EVERY 4 CYCLICAL) (R HHAC)
     Route: 065
     Dates: start: 2021

REACTIONS (6)
  - Splenic marginal zone lymphoma recurrent [Unknown]
  - Bronchiectasis [Unknown]
  - Malignant neoplasm progression [Unknown]
  - Pulmonary function test decreased [Unknown]
  - Product use issue [Unknown]
  - Off label use [Unknown]

NARRATIVE: CASE EVENT DATE: 20210101
